FAERS Safety Report 15766985 (Version 1)
Quarter: 2018Q4

REPORT INFORMATION
  Report Type: Spontaneous
  Country: CN (occurrence: CN)
  Receive Date: 20181227
  Receipt Date: 20181227
  Transmission Date: 20190205
  Serious: Yes (Life-Threatening, Hospitalization, Other)
  Sender: FDA-Public Use
  Company Number: CN-GLAXOSMITHKLINE-CN2018GSK229491

PATIENT
  Age: 45 Year
  Sex: Male

DRUGS (2)
  1. LAMOTRIGINE. [Suspect]
     Active Substance: LAMOTRIGINE
     Indication: SEIZURE
     Dosage: 25 MG, QD
     Route: 048
     Dates: start: 20170302
  2. SODIUM VALPROATE AGUETTANT [Concomitant]
     Active Substance: VALPROATE SODIUM
     Indication: EPILEPSY
     Dosage: 0.4 G, BID
     Route: 048
     Dates: start: 20170302

REACTIONS (16)
  - Stevens-Johnson syndrome [Recovered/Resolved]
  - Pyrexia [Recovered/Resolved]
  - Skin exfoliation [Recovered/Resolved]
  - Pruritus generalised [Recovered/Resolved]
  - Dyskinesia [Recovered/Resolved]
  - Blister [Recovered/Resolved]
  - Skin lesion [Recovered/Resolved]
  - Mucosal inflammation [Recovered/Resolved]
  - Eye pain [Recovered/Resolved]
  - Erythema [Recovered/Resolved]
  - Papule [Recovered/Resolved]
  - Chills [Recovered/Resolved]
  - Drug eruption [Recovered/Resolved]
  - Skin necrosis [Recovered/Resolved]
  - Systemic toxicity [Recovered/Resolved]
  - Hyperaemia [Recovered/Resolved]
